FAERS Safety Report 13105180 (Version 1)
Quarter: 2017Q1

REPORT INFORMATION
  Report Type: Spontaneous
  Country: US (occurrence: US)
  Receive Date: 20170111
  Receipt Date: 20170111
  Transmission Date: 20170428
  Serious: Yes (Hospitalization, Other)
  Sender: FDA-Public Use
  Company Number: US-SUNOVION-2017SUN000066

PATIENT
  Age: 56 Year
  Sex: Female
  Weight: 71.66 kg

DRUGS (11)
  1. ACYCLOVIR. [Concomitant]
     Active Substance: ACYCLOVIR
     Dosage: 400 MG, BID
     Route: 048
  2. BIOTENE NOS [Concomitant]
     Active Substance: CETYLPYRIDINIUM CHLORIDE OR SODIUM FLUORIDE OR SODIUM MONOFLUOROPHOSPHATE OR GLUCOSE OXIDASE\LACTOFERRIN\LACTOPEROXIDASE BOVINE\LYSOZYME
     Dosage: UNK
  3. PREMARIN [Concomitant]
     Active Substance: ESTROGENS, CONJUGATED
     Indication: HORMONE REPLACEMENT THERAPY
     Dosage: 1.25 MG, QD
     Route: 048
  4. KEPPRA [Concomitant]
     Active Substance: LEVETIRACETAM
     Indication: SEIZURE
     Dosage: 750 MG, BID
  5. APTIOM [Suspect]
     Active Substance: ESLICARBAZEPINE ACETATE
     Indication: SEIZURE
     Dosage: 200 MG, QD
     Route: 048
  6. LEVOTHYROXINE. [Concomitant]
     Active Substance: LEVOTHYROXINE
     Indication: THYROID DISORDER
     Dosage: 50 ?G, QD
     Route: 048
  7. APTIOM [Suspect]
     Active Substance: ESLICARBAZEPINE ACETATE
     Dosage: 1200 MG, QD
     Route: 048
     Dates: start: 20170104
  8. BENTYL [Concomitant]
     Active Substance: DICYCLOMINE HYDROCHLORIDE
     Indication: ABDOMINAL PAIN UPPER
     Dosage: UNK
  9. LAMICTAL [Concomitant]
     Active Substance: LAMOTRIGINE
     Dosage: 200 MG, BID
     Route: 048
  10. MVI [Concomitant]
     Active Substance: VITAMINS
     Dosage: UNK, QD
     Route: 048
  11. APTIOM [Suspect]
     Active Substance: ESLICARBAZEPINE ACETATE
     Dosage: 800 MG, QD
     Route: 048
     Dates: end: 20170103

REACTIONS (8)
  - Nausea [Not Recovered/Not Resolved]
  - Vision blurred [Not Recovered/Not Resolved]
  - Gait disturbance [Not Recovered/Not Resolved]
  - Confusional state [Not Recovered/Not Resolved]
  - Seizure [Unknown]
  - Vertigo [Not Recovered/Not Resolved]
  - Vomiting [Not Recovered/Not Resolved]
  - Headache [Not Recovered/Not Resolved]

NARRATIVE: CASE EVENT DATE: 20170103
